FAERS Safety Report 7755044-9 (Version None)
Quarter: 2011Q3

REPORT INFORMATION
  Report Type: 
  Country: None (occurrence: None)
  Receive Date: 20110916
  Receipt Date: 20110905
  Transmission Date: 20111222
  Serious: Yes (Other)
  Sender: FDA-Public Use
  Company Number: HU-ELI_LILLY_AND_COMPANY-HU201109001100

PATIENT
  Sex: Female

DRUGS (3)
  1. TERIPARATIDE [Suspect]
     Dosage: 20 UG, QD
     Route: 058
     Dates: start: 20110601, end: 20110828
  2. CALCIUM CARBONATE [Concomitant]
  3. VITAMIN D [Concomitant]

REACTIONS (3)
  - HEADACHE [None]
  - PAIN [None]
  - ISCHAEMIA [None]
